FAERS Safety Report 21105999 (Version 1)
Quarter: 2022Q3

REPORT INFORMATION
  Report Type: Spontaneous
  Country: US (occurrence: None)
  Receive Date: 20220720
  Receipt Date: 20220720
  Transmission Date: 20221026
  Serious: Yes (Other)
  Sender: FDA-Public Use
  Company Number: None

PATIENT
  Age: 58 Year
  Sex: Female
  Weight: 103.5 kg

DRUGS (5)
  1. PAXLOVID [Suspect]
     Active Substance: NIRMATRELVIR\RITONAVIR
  2. NEXIUM [Concomitant]
     Active Substance: ESOMEPRAZOLE MAGNESIUM
  3. LOSARTAN [Concomitant]
     Active Substance: LOSARTAN
  4. CELEBREX [Concomitant]
     Active Substance: CELECOXIB
  5. ASPIRIN [Concomitant]
     Active Substance: ASPIRIN

REACTIONS (8)
  - SARS-CoV-2 test positive [None]
  - Disease recurrence [None]
  - Malaise [None]
  - Sneezing [None]
  - Nasal congestion [None]
  - Headache [None]
  - Cough [None]
  - Upper-airway cough syndrome [None]

NARRATIVE: CASE EVENT DATE: 20220715
